FAERS Safety Report 9778072 (Version 2)
Quarter: 2014Q1

REPORT INFORMATION
  Report Type: Spontaneous
  Country: US (occurrence: US)
  Receive Date: 20131223
  Receipt Date: 20140116
  Transmission Date: 20141002
  Serious: Yes (Hospitalization, Other)
  Sender: FDA-Public Use
  Company Number: PHEH2013US025807

PATIENT
  Age: 49 Year
  Sex: Female

DRUGS (7)
  1. GILENYA [Suspect]
     Dosage: 0.5 MG, UNK
     Route: 048
  2. VITAMIN D3 [Concomitant]
  3. FISH OIL [Concomitant]
  4. SUPER B COMPLEX                    /01995301/ [Concomitant]
  5. CINNAMON [Concomitant]
  6. CYCLOBENZAPRINE [Concomitant]
  7. NORCO [Concomitant]

REACTIONS (3)
  - Intervertebral disc degeneration [Unknown]
  - Back pain [Unknown]
  - Fall [Unknown]
